FAERS Safety Report 5084283-3 (Version None)
Quarter: 2006Q3

REPORT INFORMATION
  Report Type: 
  Country: None (occurrence: None)
  Receive Date: 20060821
  Receipt Date: 20060731
  Transmission Date: 20061208
  Serious: Yes (Other)
  Sender: FDA-Public Use
  Company Number: NLWYE452301AUG06

PATIENT
  Sex: Female

DRUGS (1)
  1. ENBREL [Suspect]
     Indication: RHEUMATOID ARTHRITIS
     Route: 058
     Dates: start: 20060515, end: 20060728

REACTIONS (4)
  - BLOOD PRESSURE INCREASED [None]
  - DERMATITIS ALLERGIC [None]
  - INJECTION SITE ERYTHEMA [None]
  - RED BLOOD CELL SEDIMENTATION RATE INCREASED [None]
